FAERS Safety Report 9532846 (Version 1)
Quarter: 2013Q1

REPORT INFORMATION
  Report Type: Spontaneous
  Country: US (occurrence: None)
  Receive Date: 20130320
  Receipt Date: 20130320
  Transmission Date: 20140127
  Serious: Yes (Death, Hospitalization)
  Sender: FDA-Public Use
  Company Number: 075253

PATIENT
  Age: 27 Year
  Sex: Female

DRUGS (3)
  1. ALPRAZOLAM [Suspect]
     Route: 048
  2. HYDROCODONE W/IBUPROFEN [Suspect]
     Route: 048
  3. PHENCYCLIDINE [Suspect]
     Route: 048

REACTIONS (2)
  - Cardio-respiratory arrest [None]
  - Toxicity to various agents [None]
